FAERS Safety Report 17539578 (Version 6)
Quarter: 2022Q2

REPORT INFORMATION
  Report Type: Spontaneous
  Country: US (occurrence: US)
  Receive Date: 20200313
  Receipt Date: 20220406
  Transmission Date: 20220720
  Serious: No
  Sender: FDA-Public Use
  Company Number: US-PFIZER INC-2020089330

PATIENT
  Age: 72 Year
  Sex: Male

DRUGS (2)
  1. LYRICA [Suspect]
     Active Substance: PREGABALIN
     Indication: Back pain
     Dosage: 200 MG, 3X/DAY (TAKE 1 CAPSULE (200 MG TOTAL) BY MOUTH 3 (THREE) TIMES A DAY)
     Route: 048
  2. LYRICA [Suspect]
     Active Substance: PREGABALIN
     Indication: Spinal osteoarthritis

REACTIONS (2)
  - Pain [Unknown]
  - Pain in extremity [Unknown]
